FAERS Safety Report 8341904-7 (Version None)
Quarter: 2012Q2

REPORT INFORMATION
  Report Type: 
  Country: None (occurrence: None)
  Receive Date: 20120503
  Receipt Date: 20120419
  Transmission Date: 20120825
  Serious: Yes (Hospitalization)
  Sender: FDA-Public Use
  Company Number: JPI-P-021011

PATIENT
  Age: 60 Year
  Sex: Male
  Weight: 90.7194 kg

DRUGS (13)
  1. DIVALPROEX SODIUM [Concomitant]
  2. CITALOPRAM HYDROBROMIDE [Concomitant]
  3. ROPINIROLE HYDROCHLORIDE [Concomitant]
  4. VITAMIN D [Concomitant]
  5. HYDROCODONE BITARTRATE AND ACETAMINOPHEN [Concomitant]
  6. GEMFIBROZIL [Concomitant]
  7. LOVASTATIN [Concomitant]
  8. XYREM [Suspect]
     Indication: NARCOLEPSY
     Dosage: ORAL, 10 GM (5 GM, 2 IN 1 D), ORAL
     Route: 048
     Dates: start: 20101207
  9. LISINOPRIL AND HYDROCHLOROTHIAZIDE [Concomitant]
  10. ALLOPURINOL [Concomitant]
  11. TAMSULOSIN HYDROCHLORIDE [Concomitant]
  12. TEMAZEPAM [Suspect]
     Indication: PRODUCT USED FOR UNKNOWN INDICATION
  13. IBUPROFEN TABLETS [Concomitant]

REACTIONS (6)
  - VOMITING [None]
  - WRONG DRUG ADMINISTERED [None]
  - ACCIDENTAL EXPOSURE [None]
  - HYPERHIDROSIS [None]
  - INCORRECT DOSE ADMINISTERED [None]
  - INSOMNIA [None]
